FAERS Safety Report 9118318 (Version 1)
Quarter: 2013Q1

REPORT INFORMATION
  Report Type: Spontaneous
  Country: US (occurrence: None)
  Receive Date: 20130221
  Receipt Date: 20130221
  Transmission Date: 20140127
  Serious: Yes (Other)
  Sender: FDA-Public Use
  Company Number: None

PATIENT
  Age: 15 Year
  Sex: Female
  Weight: 56.7 kg

DRUGS (1)
  1. SERTRALINE 50MG CAMBER P [Suspect]
     Indication: DEPRESSION
     Route: 048
     Dates: start: 20130119, end: 20130209

REACTIONS (3)
  - Local swelling [None]
  - Skin disorder [None]
  - Pain [None]
